FAERS Safety Report 6335493-6 (Version None)
Quarter: 2009Q3

REPORT INFORMATION
  Report Type: 
  Country: None (occurrence: None)
  Receive Date: 20090827
  Receipt Date: 20090814
  Transmission Date: 20100115
  Serious: Yes (Death)
  Sender: FDA-Public Use
  Company Number: 2009AL005516

PATIENT
  Sex: Male

DRUGS (2)
  1. AMLODIPINE BESYLATE [Suspect]
     Indication: HYPERTENSION
     Dosage: PO
     Route: 048
  2. SIMVASTATIN [Concomitant]

REACTIONS (1)
  - DRUG TOXICITY [None]
